FAERS Safety Report 19463034 (Version 1)
Quarter: 2021Q2

REPORT INFORMATION
  Report Type: Spontaneous
  Country: IT (occurrence: IT)
  Receive Date: 20210625
  Receipt Date: 20210625
  Transmission Date: 20210717
  Serious: Yes (Other)
  Sender: FDA-Public Use
  Company Number: IT-ASTRAZENECA-2021A272901

PATIENT
  Age: 79 Year
  Sex: Female

DRUGS (4)
  1. OMEPRAZOLE. [Suspect]
     Active Substance: OMEPRAZOLE
     Indication: HELICOBACTER INFECTION
     Route: 048
     Dates: start: 20210307
  2. PYLERA [Suspect]
     Active Substance: BISMUTH SUBCITRATE POTASSIUM\METRONIDAZOLE\TETRACYCLINE HYDROCHLORIDE
     Indication: HELICOBACTER INFECTION
     Dosage: 140 MG/125 MG/125 MG
     Route: 065
     Dates: start: 20210307
  3. ALONEB [Concomitant]
     Active Substance: HYDROCHLOROTHIAZIDE\NEBIVOLOL HYDROCHLORIDE
     Dosage: 5 MG/25 MG
  4. TIMOGEL [Concomitant]
     Active Substance: TIMOLOL MALEATE
     Dosage: 1 MG/G

REACTIONS (4)
  - Abdominal pain upper [Unknown]
  - Feeling abnormal [Unknown]
  - Chest pain [Unknown]
  - Tremor [Unknown]

NARRATIVE: CASE EVENT DATE: 20210307
